FAERS Safety Report 4352777-1 (Version None)
Quarter: 2004Q2

REPORT INFORMATION
  Report Type: 
  Country: None (occurrence: None)
  Receive Date: 20040429
  Receipt Date: 20040420
  Transmission Date: 20050107
  Serious: Yes (Hospitalization)
  Sender: FDA-Public Use
  Company Number: US-SHR-04-024441

PATIENT
  Age: 36 Year
  Sex: Male

DRUGS (6)
  1. BETASERON [Suspect]
     Indication: MULTIPLE SCLEROSIS
     Dosage: 8 MIU, EVERY 2D, SUBCUTANEOUS
     Route: 058
     Dates: start: 20021113, end: 20040101
  2. IMMUNOGLOBULINS (IMMUNOGLOBULINS) [Concomitant]
  3. ZOLOFT [Concomitant]
  4. LEXAPRO [Concomitant]
  5. RHINOCORT [Concomitant]
  6. VIAGRA [Concomitant]

REACTIONS (3)
  - DYSPNOEA [None]
  - MUSCLE SPASMS [None]
  - PYREXIA [None]
